FAERS Safety Report 6673628-6 (Version None)
Quarter: 2010Q1

REPORT INFORMATION
  Report Type: 
  Country: None (occurrence: None)
  Receive Date: 20100329
  Receipt Date: 20090803
  Transmission Date: 20100710
  Serious: Yes (Other)
  Sender: FDA-Public Use
  Company Number: 2009226416

PATIENT

DRUGS (1)
  1. GEODON [Suspect]

REACTIONS (1)
  - GRAND MAL CONVULSION [None]
